FAERS Safety Report 20199015 (Version 8)
Quarter: 2024Q3

REPORT INFORMATION
  Report Type: Report from Study
  Country: DE (occurrence: DE)
  Receive Date: 20211217
  Receipt Date: 20240910
  Transmission Date: 20241017
  Serious: No
  Sender: ROCHE
  Company Number: DE-ROCHE-2560898

PATIENT
  Age: 59 Year
  Sex: Male

DRUGS (12)
  1. OCREVUS [Suspect]
     Active Substance: OCRELIZUMAB
     Indication: Relapsing-remitting multiple sclerosis
     Dosage: 600 MG 217 DAYS
     Route: 042
     Dates: start: 20180502
  2. OCREVUS [Suspect]
     Active Substance: OCRELIZUMAB
     Route: 042
     Dates: start: 201909
  3. OCREVUS [Suspect]
     Active Substance: OCRELIZUMAB
     Route: 042
     Dates: start: 20200824
  4. OCREVUS [Suspect]
     Active Substance: OCRELIZUMAB
     Dosage: 600 MG IN 231 DAYS
     Route: 042
     Dates: start: 20180502
  5. COMIRNATY (TOZINAMERAN) [Suspect]
     Active Substance: TOZINAMERAN
     Indication: Product used for unknown indication
     Dosage: THIRD VACCINE ON 16/MAR/2022
     Route: 065
  6. GABAPENTIN [Concomitant]
     Active Substance: GABAPENTIN
  7. ALENDRONIC ACID [Concomitant]
     Active Substance: ALENDRONIC ACID
  8. ESOMEPRAZOLE [Concomitant]
     Active Substance: ESOMEPRAZOLE
  9. LISILICH COMP [Concomitant]
  10. METHOTREXATE [Concomitant]
     Active Substance: METHOTREXATE
  11. LATANOPROST [Concomitant]
     Active Substance: LATANOPROST
     Dosage: BEFORE NIGHT? FREQUENCY TEXT:AT NIGHT
  12. DUPIXENT [Concomitant]
     Active Substance: DUPILUMAB
     Route: 058

REACTIONS (16)
  - Headache [Recovered/Resolved]
  - Aphonia [Recovered/Resolved]
  - Oropharyngeal pain [Recovered/Resolved]
  - Dysphagia [Recovered/Resolved]
  - Intraocular pressure increased [Recovered/Resolved]
  - Ligament sprain [Unknown]
  - Ligament injury [Recovered/Resolved]
  - Fatigue [Recovered/Resolved]
  - COVID-19 [Recovered/Resolved]
  - Increased upper airway secretion [Recovered/Resolved]
  - Inappropriate schedule of product administration [Unknown]
  - Dyspnoea [Recovering/Resolving]
  - Nasopharyngitis [Recovered/Resolved]
  - Cough [Recovered/Resolved]
  - Malaise [Recovered/Resolved]
  - Chills [Recovered/Resolved]

NARRATIVE: CASE EVENT DATE: 20200120
